FAERS Safety Report 20566474 (Version 1)
Quarter: 2022Q1

REPORT INFORMATION
  Report Type: Spontaneous
  Country: IT (occurrence: None)
  Receive Date: 20220308
  Receipt Date: 20220308
  Transmission Date: 20220423
  Serious: Yes (Other)
  Sender: FDA-Public Use
  Company Number: 2022A090090

PATIENT
  Age: 75 Year
  Sex: Female
  Weight: 67 kg

DRUGS (2)
  1. ROSUVASTATIN [Suspect]
     Active Substance: ROSUVASTATIN
     Indication: Hypercholesterolaemia
     Route: 048
     Dates: start: 20220203, end: 20220221
  2. LOYADA [Concomitant]
     Route: 057
     Dates: start: 20210331, end: 20220221

REACTIONS (2)
  - Stevens-Johnson syndrome [Unknown]
  - Rash [Unknown]

NARRATIVE: CASE EVENT DATE: 20220209
